FAERS Safety Report 4510345-2 (Version None)
Quarter: 2004Q4

REPORT INFORMATION
  Report Type: 
  Country: None (occurrence: None)
  Receive Date: 20041122
  Receipt Date: 20041108
  Transmission Date: 20050328
  Serious: Yes (Other)
  Sender: FDA-Public Use
  Company Number: 2004-04843

PATIENT
  Age: 75 Year
  Sex: Female
  Weight: 84.8 kg

DRUGS (16)
  1. PROBENECID/COLCHICINE [Suspect]
     Indication: GOUT
     Dosage: 1 TABLET, BID, ORAL
     Route: 048
     Dates: start: 19950101
  2. COLCHICINE (WATSON LABORATORIES) (COLCHICINE) TABLET, 0.6MG [Suspect]
     Indication: GOUT
     Dosage: 1 TABLET, BID, ORAL
     Route: 048
     Dates: start: 19540101, end: 19590101
  3. RELAFEN [Concomitant]
  4. TETRACYCLINE [Concomitant]
  5. PROCARDIA [Concomitant]
  6. POTASSIUM (POTASSIUM) [Concomitant]
  7. EVISTA [Concomitant]
  8. DETROL [Concomitant]
  9. FOSAMAX [Concomitant]
  10. THYROID TAB [Concomitant]
  11. ADRENALIN (EPINEPHRINE) [Concomitant]
  12. CREON [Concomitant]
  13. FOLIC ACID [Concomitant]
  14. DHEA (PRASTERONE) [Concomitant]
  15. MAGNESIUM (MAGNESIUM) [Concomitant]
  16. MULTIVITAMINS (ERGOCALCIFEROL, THIAMINE HYDROCHLORIDE, RETINOL, RIBOFL [Concomitant]

REACTIONS (2)
  - SKIN CANCER [None]
  - SKIN WRINKLING [None]
